FAERS Safety Report 10339457 (Version 2)
Quarter: 2014Q1

REPORT INFORMATION
  Report Type: Spontaneous
  Country: US (occurrence: None)
  Receive Date: 20120817
  Receipt Date: 20130815
  Transmission Date: 20141002
  Serious: Yes (Other)
  Sender: FDA-Public Use
  Company Number: ADR-2012-00860

PATIENT
  Age: 46 Year
  Sex: Female

DRUGS (2)
  1. BACLOFEN INTRATHECAL (BACLOFEN INJECTION) 2000MCG/ML [Suspect]
     Indication: MUSCLE SPASTICITY
  2. BACLOFEN INTRATHECAL (BACLOFEN INJECTION) 2000MCG/ML [Suspect]
     Indication: MUSCLE SPASTICITY

REACTIONS (9)
  - Muscle spasticity [None]
  - Tremor [None]
  - Pruritus [None]
  - Drug withdrawal syndrome [None]
  - Hypertension [None]
  - Pyrexia [None]
  - Therapeutic response unexpected [None]
  - Tachycardia [None]
  - Erythema [None]
